FAERS Safety Report 16188134 (Version 1)
Quarter: 2020Q3

REPORT INFORMATION
  Report Type: Spontaneous
  Country: GR (occurrence: GR)
  Receive Date: 20190412
  Receipt Date: 20190412
  Transmission Date: 20201104
  Serious: Yes (Other)
  Sender: FDA-Public Use
  Company Number: GR-ROCHE-2290428

PATIENT
  Age: 88 Year
  Sex: Female

DRUGS (3)
  1. DENOSUMAB [Concomitant]
     Active Substance: DENOSUMAB
     Indication: OSTEOPOROSIS
     Route: 065
  2. RISEDRONATE SODIUM. [Suspect]
     Active Substance: RISEDRONATE SODIUM
     Indication: OSTEOPOROSIS
     Route: 065
  3. IBANDRONIC ACID. [Suspect]
     Active Substance: IBANDRONIC ACID
     Indication: OSTEOPOROSIS
     Route: 065

REACTIONS (3)
  - Bone hypertrophy [Unknown]
  - Atypical femur fracture [Recovered/Resolved]
  - Pain in extremity [Unknown]
